FAERS Safety Report 18181059 (Version 1)
Quarter: 2020Q3

REPORT INFORMATION
  Report Type: Other
  Country: CA (occurrence: CA)
  Receive Date: 20200821
  Receipt Date: 20200821
  Transmission Date: 20201103
  Serious: Yes (Hospitalization, Other)
  Sender: FDA-Public Use
  Company Number: CA-ASTELLAS-2020US027909

PATIENT
  Age: 51 Year
  Sex: Male

DRUGS (3)
  1. MYCOPHENOLATE MOFETIL. [Suspect]
     Active Substance: MYCOPHENOLATE MOFETIL
     Indication: IMMUNOSUPPRESSANT DRUG THERAPY
     Dosage: UNK UNK, UNKNOWN FREQ.
     Route: 065
  2. TACROLIMUS. [Suspect]
     Active Substance: TACROLIMUS
     Indication: IMMUNOSUPPRESSANT DRUG THERAPY
     Dosage: UNK UNK, UNKNOWN FREQ.
     Route: 065
  3. PREDNISONE. [Suspect]
     Active Substance: PREDNISONE
     Indication: IMMUNOSUPPRESSANT DRUG THERAPY
     Dosage: UNK UNK, UNKNOWN FREQ.
     Route: 065

REACTIONS (17)
  - Vertigo [Unknown]
  - Depressed level of consciousness [Unknown]
  - Vomiting [Unknown]
  - Cerebral atrophy [Unknown]
  - Dysarthria [Unknown]
  - Pyrexia [Unknown]
  - Urinary retention [Unknown]
  - Quadriplegia [Unknown]
  - Back pain [Unknown]
  - Diarrhoea [Unknown]
  - Pupillary disorder [Unknown]
  - Respiratory failure [Unknown]
  - Encephalomyelitis [Unknown]
  - Headache [Unknown]
  - Product use in unapproved indication [Unknown]
  - Malaise [Unknown]
  - West Nile viral infection [Unknown]
